FAERS Safety Report 6968756-1 (Version None)
Quarter: 2010Q3

REPORT INFORMATION
  Report Type: 
  Country: None (occurrence: None)
  Receive Date: 20100907
  Receipt Date: 20100826
  Transmission Date: 20110219
  Serious: Yes (Other)
  Sender: FDA-Public Use
  Company Number: JP-JNJFOC-20100800719

PATIENT
  Age: 80 Year
  Sex: Male

DRUGS (5)
  1. DUROTEP MT [Suspect]
     Indication: BONE SARCOMA
     Route: 062
  2. TAMSULOSIN HCL [Concomitant]
     Route: 048
  3. EVIPROSTAT [Concomitant]
     Route: 048
  4. CEFCAPENE PIVOXIL HYDROCHLORIDE [Concomitant]
     Route: 048
  5. PANTETHINE [Concomitant]
     Route: 048

REACTIONS (1)
  - URINARY RETENTION [None]
